FAERS Safety Report 24311088 (Version 2)
Quarter: 2024Q4

REPORT INFORMATION
  Report Type: Spontaneous
  Country: US (occurrence: US)
  Receive Date: 20240912
  Receipt Date: 20241024
  Transmission Date: 20250114
  Serious: Yes (Other)
  Sender: ALEMBIC
  Company Number: US-ALEMBIC PHARMACUETICALS LIMITED-2024SCAL001288

PATIENT

DRUGS (4)
  1. TESTOSTERONE [Suspect]
     Active Substance: TESTOSTERONE
     Indication: Hypogonadism
     Dosage: UNK UNK, QD
     Route: 065
  2. TESTOSTERONE [Suspect]
     Active Substance: TESTOSTERONE
     Indication: Orchitis mumps
  3. TESTOSTERONE [Suspect]
     Active Substance: TESTOSTERONE
     Indication: Sleep apnoea syndrome
  4. TESTOSTERONE [Suspect]
     Active Substance: TESTOSTERONE
     Indication: Obesity

REACTIONS (1)
  - Haemolysis [Unknown]
